FAERS Safety Report 12884457 (Version 1)
Quarter: 2016Q4

REPORT INFORMATION
  Report Type: Spontaneous
  Country: US (occurrence: US)
  Receive Date: 20161024
  Receipt Date: 20161024
  Transmission Date: 20170207
  Serious: Yes (Life-Threatening, Hospitalization)
  Sender: FDA-Public Use
  Company Number: None

PATIENT
  Age: 83 Year
  Sex: Male

DRUGS (1)
  1. WARFARIN [Suspect]
     Active Substance: WARFARIN
     Dosage: OTHER
     Route: 048
     Dates: start: 20020924, end: 20160808

REACTIONS (9)
  - Epigastric discomfort [None]
  - Head injury [None]
  - Subarachnoid haemorrhage [None]
  - Fall [None]
  - Dyspnoea [None]
  - Skull fracture [None]
  - Thrombosis [None]
  - Syncope [None]
  - Subdural haemorrhage [None]

NARRATIVE: CASE EVENT DATE: 20160713
